FAERS Safety Report 18011757 (Version 2)
Quarter: 2022Q1

REPORT INFORMATION
  Report Type: Spontaneous
  Country: CA (occurrence: CA)
  Receive Date: 20200713
  Receipt Date: 20220121
  Transmission Date: 20220423
  Serious: Yes (Other)
  Sender: FDA-Public Use
  Company Number: CA-PFIZER INC-2020259600

PATIENT
  Age: 78 Year
  Sex: Female
  Weight: 75 kg

DRUGS (6)
  1. AMINOPHYLLINE [Suspect]
     Active Substance: AMINOPHYLLINE
     Indication: Diagnostic procedure
     Dosage: 75 MG, SINGLE
     Route: 042
  2. PERSANTINE [Suspect]
     Active Substance: DIPYRIDAMOLE
     Indication: Diagnostic procedure
     Dosage: 30 MG, SINGLE
     Route: 042
  3. TECHNETIUM TC-99M PERTECHNETATE [Suspect]
     Active Substance: TECHNETIUM TC-99M PERTECHNETATE
     Dosage: 925 MBQ
     Route: 042
  4. ATENOLOL [Suspect]
     Active Substance: ATENOLOL
     Indication: Diagnostic procedure
     Dosage: 925 MBQ
     Route: 042
  5. ASPIRIN [Concomitant]
     Active Substance: ASPIRIN
     Dosage: UNK
  6. CRESTOR [Concomitant]
     Active Substance: ROSUVASTATIN CALCIUM
     Dosage: UNK

REACTIONS (3)
  - Acne [Recovered/Resolved]
  - Pruritus [Recovered/Resolved]
  - Rash papular [Recovered/Resolved]
